FAERS Safety Report 4801202-2 (Version None)
Quarter: 2005Q4

REPORT INFORMATION
  Report Type: 
  Country: None (occurrence: None)
  Receive Date: 20051011
  Receipt Date: 20050928
  Transmission Date: 20060501
  Serious: Yes (Other)
  Sender: FDA-Public Use
  Company Number: 2005136297

PATIENT
  Age: 67 Year
  Sex: Female

DRUGS (6)
  1. LYRICA [Suspect]
     Indication: NEUROPATHY PERIPHERAL
     Dosage: 600 MG (200 MG, 3 IN 1 D), ORAL
     Route: 048
     Dates: start: 20050906, end: 20050909
  2. ATORVASTATIN CALCIUM [Concomitant]
  3. LOSARTAN POTASSIUM [Concomitant]
  4. ROSIGLITAZONE (ROSIGLITAZONE) [Concomitant]
  5. GLICLAZIDE (GLICLAZIDE) [Concomitant]
  6. ASPIRIN [Concomitant]

REACTIONS (2)
  - MUSCLE TWITCHING [None]
  - TUNNEL VISION [None]
